FAERS Safety Report 6620231-X (Version None)
Quarter: 2010Q1

REPORT INFORMATION
  Report Type: 
  Country: None (occurrence: None)
  Receive Date: 20100309
  Receipt Date: 20100226
  Transmission Date: 20100710
  Serious: Yes (Death)
  Sender: FDA-Public Use
  Company Number: US-BAXTER-2010BH005341

PATIENT
  Age: 69 Year
  Sex: Male

DRUGS (2)
  1. DIANEAL [Suspect]
     Indication: PERITONEAL DIALYSIS
     Route: 033
     Dates: end: 20100216
  2. DIANEAL [Suspect]
     Indication: PERITONEAL DIALYSIS
     Route: 033
     Dates: end: 20100216

REACTIONS (3)
  - DIABETES MELLITUS [None]
  - HEPATIC CIRRHOSIS [None]
  - OBESITY [None]
